FAERS Safety Report 18948412 (Version 1)
Quarter: 2021Q1

REPORT INFORMATION
  Report Type: Spontaneous
  Country: US (occurrence: US)
  Receive Date: 20210226
  Receipt Date: 20210226
  Transmission Date: 20210420
  Serious: No
  Sender: FDA-Public Use
  Company Number: US-ROCHE-2546976

PATIENT
  Sex: Female

DRUGS (19)
  1. CYCLOBENZAPRINE HCL [Concomitant]
     Active Substance: CYCLOBENZAPRINE HYDROCHLORIDE
  2. LISINOPRIL. [Concomitant]
     Active Substance: LISINOPRIL
  3. FLUOCINOLONE ACETONIDE. [Concomitant]
     Active Substance: FLUOCINOLONE ACETONIDE
  4. MONTELUKAST SODIUM. [Concomitant]
     Active Substance: MONTELUKAST SODIUM
  5. TRULICITY [Concomitant]
     Active Substance: DULAGLUTIDE
  6. BREO ELLIPTA [Concomitant]
     Active Substance: FLUTICASONE FUROATE\VILANTEROL TRIFENATATE
  7. VENTOLIN HFA [Concomitant]
     Active Substance: ALBUTEROL SULFATE
  8. ALBUTEROL SULFATE. [Concomitant]
     Active Substance: ALBUTEROL SULFATE
  9. LUMIGAN [Concomitant]
     Active Substance: BIMATOPROST
  10. LYRICA [Concomitant]
     Active Substance: PREGABALIN
  11. PRAVASTATIN SODIUM. [Concomitant]
     Active Substance: PRAVASTATIN SODIUM
  12. ASPIRIN 81 [Concomitant]
     Active Substance: ASPIRIN
  13. CALCIUM [Concomitant]
     Active Substance: CALCIUM
  14. OMEPRAZOLE. [Concomitant]
     Active Substance: OMEPRAZOLE
  15. XOLAIR [Suspect]
     Active Substance: OMALIZUMAB
     Indication: ASTHMA
     Dosage: PFS 150MG ML
     Route: 058
     Dates: start: 20200127
  16. CLARITIN [Concomitant]
     Active Substance: LORATADINE
  17. DULOXETINE HCL [Concomitant]
     Active Substance: DULOXETINE HYDROCHLORIDE
  18. TRIAMTERENE HCTZ [Concomitant]
     Active Substance: HYDROCHLOROTHIAZIDE\TRIAMTERENE
  19. VITAMIN D3 [Concomitant]
     Active Substance: CHOLECALCIFEROL

REACTIONS (1)
  - Asthma [Recovered/Resolved]
